FAERS Safety Report 9782613 (Version 5)
Quarter: 2014Q1

REPORT INFORMATION
  Report Type: Report from Study
  Country: FR (occurrence: FR)
  Receive Date: 20131226
  Receipt Date: 20140204
  Transmission Date: 20141002
  Serious: Yes (Life-Threatening, Hospitalization, Other)
  Sender: FDA-Public Use
  Company Number: FR-EISAI INC-E7389-04533-CLI-FR

PATIENT
  Age: 60 Year
  Sex: Female

DRUGS (12)
  1. HALAVEN [Suspect]
     Indication: BREAST CANCER METASTATIC
     Route: 041
     Dates: start: 20131121, end: 20131121
  2. BEVACIZUMAB [Suspect]
     Indication: BREAST CANCER METASTATIC
     Dates: start: 20131121, end: 20131121
  3. ARANESP [Concomitant]
     Indication: PRODUCT USED FOR UNKNOWN INDICATION
     Route: 058
  4. NEULASTA [Concomitant]
     Indication: PRODUCT USED FOR UNKNOWN INDICATION
     Route: 058
  5. HYDROCHLOROTHIAZIDE [Concomitant]
     Indication: PRODUCT USED FOR UNKNOWN INDICATION
     Route: 048
  6. ATACAND [Concomitant]
     Indication: PRODUCT USED FOR UNKNOWN INDICATION
     Route: 048
  7. METOCLOPRAMIDE [Concomitant]
     Indication: PRODUCT USED FOR UNKNOWN INDICATION
     Dosage: UNKNOWN
     Route: 048
  8. EFFERALGAN CODEINE [Concomitant]
     Indication: PRODUCT USED FOR UNKNOWN INDICATION
     Dosage: UNKNOWN
     Route: 048
  9. TAXOL [Concomitant]
     Indication: BREAST CANCER METASTATIC
     Dosage: UNKNOWN
     Dates: start: 20131211
  10. BISOPROLOL [Concomitant]
     Dosage: UNKNOWN
     Route: 042
  11. ASPEGIC [Concomitant]
     Dosage: UNKNOWN
  12. DUROGESIC [Concomitant]
     Dosage: UNKNOWN

REACTIONS (10)
  - Cardiac failure [Recovered/Resolved]
  - Ejection fraction decreased [Recovered/Resolved]
  - Pulmonary oedema [Recovered/Resolved]
  - Brain natriuretic peptide increased [Recovered/Resolved]
  - Bacteraemia [Recovered/Resolved]
  - Sepsis [Recovered/Resolved]
  - Pyrexia [Recovered/Resolved]
  - Dyspnoea [Recovered/Resolved]
  - Livedo reticularis [Recovered/Resolved]
  - Chest pain [Recovered/Resolved]
